FAERS Safety Report 11374653 (Version 1)
Quarter: 2015Q3

REPORT INFORMATION
  Report Type: Spontaneous
  Country: US (occurrence: US)
  Receive Date: 20150811
  Receipt Date: 20150811
  Transmission Date: 20151125
  Serious: Yes (Other)
  Sender: FDA-Public Use
  Company Number: US-OCTA-LIT10615US

PATIENT
  Age: 10 Month
  Sex: Male

DRUGS (1)
  1. HUMAN NORMAL IMMUNOGLOBULIN  (IV) [Suspect]
     Active Substance: HUMAN IMMUNOGLOBULIN G
     Indication: KAWASAKI^S DISEASE
     Route: 042

REACTIONS (2)
  - Haemolytic anaemia [Unknown]
  - Leukocytosis [Unknown]
